FAERS Safety Report 5102594-X (Version None)
Quarter: 2006Q3

REPORT INFORMATION
  Report Type: 
  Country: None (occurrence: None)
  Receive Date: 20060907
  Receipt Date: 20060825
  Transmission Date: 20061208
  Serious: Yes (Hospitalization)
  Sender: FDA-Public Use
  Company Number: 2006103883

PATIENT
  Sex: Male

DRUGS (1)
  1. SILDENAFIL CITRATE [Suspect]
     Indication: PULMONARY HYPERTENSION
     Dosage: 28 MG (7 MG, 4 IN 1 D) ORAL
     Route: 048

REACTIONS (2)
  - CONDITION AGGRAVATED [None]
  - PULMONARY HYPERTENSION [None]
